FAERS Safety Report 11307519 (Version 1)
Quarter: 2015Q3

REPORT INFORMATION
  Report Type: Spontaneous
  Country: FR (occurrence: FR)
  Receive Date: 20150723
  Receipt Date: 20150723
  Transmission Date: 20151125
  Serious: Yes (Hospitalization)
  Sender: FDA-Public Use
  Company Number: FR-MYLANLABS-2015M1024701

PATIENT

DRUGS (1)
  1. OMEPRAZOLE. [Suspect]
     Active Substance: OMEPRAZOLE
     Indication: DYSPEPSIA
     Dosage: FOR 11 MONTHS
     Route: 065

REACTIONS (5)
  - Hypocalcaemia [Recovered/Resolved]
  - Tetany [Recovered/Resolved]
  - Hypomagnesaemia [Recovered/Resolved]
  - Hypoparathyroidism [Recovered/Resolved]
  - Hypokalaemia [Recovered/Resolved]
